FAERS Safety Report 5155625-5 (Version None)
Quarter: 2006Q4

REPORT INFORMATION
  Report Type: 
  Country: None (occurrence: None)
  Receive Date: 20061114
  Receipt Date: 20061030
  Transmission Date: 20070319
  Serious: Yes (Other)
  Sender: FDA-Public Use
  Company Number: 2006133181

PATIENT
  Age: 75 Year
  Sex: Male

DRUGS (7)
  1. LYRICA [Suspect]
     Indication: HERPES ZOSTER
     Dosage: 150 MG (50 MG, 3 IN 1 D)
     Dates: start: 20060101
  2. METOPROLOL TARTRATE [Concomitant]
  3. WARFARIN SODIUM [Concomitant]
  4. VALSARTAN [Concomitant]
  5. TAMSULOSIN HCL [Concomitant]
  6. LASIX [Concomitant]
  7. ALPRAZOLAM [Concomitant]

REACTIONS (2)
  - DIZZINESS [None]
  - FALL [None]
